FAERS Safety Report 9424247 (Version 1)
Quarter: 2013Q3

REPORT INFORMATION
  Report Type: Spontaneous
  Country: FR (occurrence: FR)
  Receive Date: 20130729
  Receipt Date: 20130729
  Transmission Date: 20140515
  Serious: Yes (Hospitalization)
  Sender: FDA-Public Use
  Company Number: FR-JNJFOC-20130709914

PATIENT
  Age: 94 Year
  Sex: Female

DRUGS (7)
  1. DUROGESIC [Suspect]
     Indication: SCIATICA
     Route: 062
     Dates: start: 20130618, end: 20130624
  2. SKENAN [Suspect]
     Indication: PRODUCT USED FOR UNKNOWN INDICATION
     Route: 065
     Dates: start: 20130624, end: 20130625
  3. ACTISKENAN [Suspect]
     Indication: PRODUCT USED FOR UNKNOWN INDICATION
     Dosage: IF NEEDED
     Route: 065
     Dates: start: 20130624, end: 20130625
  4. KARDEGIC [Concomitant]
     Route: 065
  5. TEMESTA [Concomitant]
     Route: 065
  6. FLECAINE [Concomitant]
     Route: 065
  7. KALEORID [Concomitant]
     Route: 065

REACTIONS (2)
  - Intestinal obstruction [Recovered/Resolved]
  - Haemoglobin decreased [Unknown]
